FAERS Safety Report 21078478 (Version 1)
Quarter: 2022Q3

REPORT INFORMATION
  Report Type: Report from Study
  Country: US (occurrence: US)
  Receive Date: 20220713
  Receipt Date: 20220713
  Transmission Date: 20221027
  Serious: No
  Sender: FDA-Public Use
  Company Number: US-VANDA PHARMACEUTICALS, INC-2022TASUS005683

PATIENT
  Sex: Female

DRUGS (11)
  1. HETLIOZ [Suspect]
     Active Substance: TASIMELTEON
     Indication: Non-24-hour sleep-wake disorder
     Dosage: 20 MILLIGRAM, QHS AT THE SAME TIME EACH NIGHT BEFORE BEDTIME, WITHOUT FOOD
     Route: 048
     Dates: start: 20220108, end: 20220128
  2. WELLBUTRIN [Concomitant]
     Active Substance: BUPROPION HYDROCHLORIDE
     Indication: Product used for unknown indication
  3. REXULTI [Concomitant]
     Active Substance: BREXPIPRAZOLE
     Indication: Product used for unknown indication
  4. WELLBUTRIN XL [Concomitant]
     Active Substance: BUPROPION HYDROCHLORIDE
     Indication: Product used for unknown indication
  5. NEURONTIN [Concomitant]
     Active Substance: GABAPENTIN
     Indication: Product used for unknown indication
  6. TRILEPTAL [Concomitant]
     Active Substance: OXCARBAZEPINE
     Indication: Product used for unknown indication
  7. TRAZODONE [Concomitant]
     Active Substance: TRAZODONE HYDROCHLORIDE
     Indication: Product used for unknown indication
  8. LAMICTAL [Concomitant]
     Active Substance: LAMOTRIGINE
     Indication: Product used for unknown indication
  9. ETHINYL ESTRADIOL\NORETHINDRONE [Concomitant]
     Active Substance: ETHINYL ESTRADIOL\NORETHINDRONE
     Indication: Product used for unknown indication
  10. LUNESTA [Concomitant]
     Active Substance: ESZOPICLONE
     Indication: Product used for unknown indication
  11. MELOXICAM [Concomitant]
     Active Substance: MELOXICAM
     Indication: Product used for unknown indication

REACTIONS (4)
  - Abdominal discomfort [Unknown]
  - Dizziness [Unknown]
  - Poor quality sleep [Unknown]
  - Headache [Unknown]
